FAERS Safety Report 26023280 (Version 1)
Quarter: 2025Q4

REPORT INFORMATION
  Report Type: Spontaneous
  Country: RU (occurrence: RU)
  Receive Date: 20251110
  Receipt Date: 20251110
  Transmission Date: 20260118
  Serious: Yes (Hospitalization, Other)
  Sender: SANOFI AVENTIS
  Company Number: RU-SA-2025SA328836

PATIENT
  Age: 67 Year
  Sex: Female

DRUGS (6)
  1. ARAVA [Suspect]
     Active Substance: LEFLUNOMIDE
     Indication: Rheumatoid arthritis
     Dosage: 20 MG, QD
  2. OLOKIZUMAB [Suspect]
     Active Substance: OLOKIZUMAB
     Indication: Rheumatoid arthritis
     Dosage: 64 MG, Q4W
     Route: 058
     Dates: start: 20250523, end: 20251023
  3. METHOTREXATE [Concomitant]
     Active Substance: METHOTREXATE
     Indication: Rheumatoid arthritis
  4. CYCLOSPORINE [Concomitant]
     Active Substance: CYCLOSPORINE
  5. RITUXIMAB [Concomitant]
     Active Substance: RITUXIMAB
     Indication: Rheumatoid arthritis
  6. ADALIMUMAB [Concomitant]
     Active Substance: ADALIMUMAB
     Indication: Rheumatoid arthritis

REACTIONS (2)
  - Osteomyelitis [Unknown]
  - Cellulitis [Unknown]

NARRATIVE: CASE EVENT DATE: 20251001
